FAERS Safety Report 16278696 (Version 2)
Quarter: 2019Q2

REPORT INFORMATION
  Report Type: Spontaneous
  Country: US (occurrence: US)
  Receive Date: 20190506
  Receipt Date: 20190531
  Transmission Date: 20190711
  Serious: No
  Sender: FDA-Public Use
  Company Number: US-BAUSCH-BL-2019-011853

PATIENT
  Age: 78 Year
  Sex: Female
  Weight: 54.48 kg

DRUGS (2)
  1. VYZULTA [Suspect]
     Active Substance: LATANOPROSTENE BUNOD
     Dosage: AS DIRECTED
     Route: 031
     Dates: start: 20190412, end: 20190416
  2. VYZULTA [Suspect]
     Active Substance: LATANOPROSTENE BUNOD
     Indication: GLAUCOMA
     Dosage: ONE DROP IN EACH EYE AT NIGHT
     Route: 031
     Dates: start: 201901, end: 201903

REACTIONS (2)
  - Intraocular pressure test abnormal [Recovered/Resolved]
  - Respiratory disorder [Recovered/Resolved]

NARRATIVE: CASE EVENT DATE: 201901
